FAERS Safety Report 16628087 (Version 2)
Quarter: 2019Q3

REPORT INFORMATION
  Report Type: Report from Study
  Country: US (occurrence: US)
  Receive Date: 20190724
  Receipt Date: 20190914
  Transmission Date: 20191004
  Serious: Yes (Hospitalization)
  Sender: FDA-Public Use
  Company Number: US-TEVA-2019-US-1081346

PATIENT
  Age: 55 Year
  Sex: Male

DRUGS (6)
  1. APIXABAN [Suspect]
     Active Substance: APIXABAN
     Indication: EMBOLISM VENOUS
     Dosage: 20 MILLIGRAM DAILY; FOUR DOSES
     Route: 048
  2. LOPINAVIR/RITONAVIR [Suspect]
     Active Substance: LOPINAVIR\RITONAVIR
     Indication: HIV INFECTION
     Dosage: LOPINAVIR/RITONAVIR 400/100MG TWICE DAILY
     Route: 065
  3. CLOPIDOGREL [Suspect]
     Active Substance: CLOPIDOGREL BISULFATE
     Indication: EMBOLISM VENOUS
     Dosage: 75 MILLIGRAM DAILY;
     Route: 065
  4. ABACAVIR/LAMIVUDINE [Concomitant]
     Active Substance: ABACAVIR\LAMIVUDINE
     Indication: HIV INFECTION
     Dosage: ABACAVIR/LAMIVUDINE 600/300MG DAILY
     Route: 065
  5. APIXABAN [Suspect]
     Active Substance: APIXABAN
     Dosage: 5 MILLIGRAM DAILY;
     Route: 048
  6. ASPIRIN. [Suspect]
     Active Substance: ASPIRIN
     Indication: EMBOLISM VENOUS
     Dosage: 81 MILLIGRAM DAILY; 81MG DAILY
     Route: 065

REACTIONS (2)
  - Procedural haemorrhage [Recovered/Resolved]
  - Haemoglobin decreased [Recovering/Resolving]
